FAERS Safety Report 4335955-7 (Version None)
Quarter: 2004Q2

REPORT INFORMATION
  Report Type: 
  Country: None (occurrence: None)
  Receive Date: 20040406
  Receipt Date: 20040322
  Transmission Date: 20050107
  Serious: Yes (Death, Other)
  Sender: FDA-Public Use
  Company Number: 2004-DE-01397DE

PATIENT
  Sex: Male

DRUGS (1)
  1. VIRAMUNE [Suspect]

REACTIONS (3)
  - MITRAL VALVE DISEASE MIXED [None]
  - SUDDEN CARDIAC DEATH [None]
  - TREATMENT NONCOMPLIANCE [None]
